FAERS Safety Report 5534321-6 (Version None)
Quarter: 2007Q4

REPORT INFORMATION
  Report Type: 
  Country: None (occurrence: None)
  Receive Date: 20071120
  Receipt Date: 20070423
  Transmission Date: 20080405
  Serious: Yes (Other)
  Sender: FDA-Public Use
  Company Number: HQWYE801024APR07

PATIENT
  Age: 70 Year
  Sex: Male

DRUGS (2)
  1. ZOSYN [Suspect]
     Dates: start: 20070416, end: 20070416
  2. TOPROL-XL [Concomitant]

REACTIONS (5)
  - ANAPHYLACTOID REACTION [None]
  - BLOOD BILIRUBIN INCREASED [None]
  - CHILLS [None]
  - TACHYCARDIA [None]
  - TRANSAMINASES INCREASED [None]
